FAERS Safety Report 18458827 (Version 1)
Quarter: 2020Q4

REPORT INFORMATION
  Report Type: Spontaneous
  Country: CN (occurrence: CN)
  Receive Date: 20201103
  Receipt Date: 20201103
  Transmission Date: 20210114
  Serious: Yes (Hospitalization)
  Sender: FDA-Public Use
  Company Number: CN-PFIZER INC-2020421647

PATIENT
  Age: 35 Year
  Sex: Female
  Weight: 63 kg

DRUGS (3)
  1. DALTEPARIN SODIUM [Suspect]
     Active Substance: DALTEPARIN SODIUM
     Indication: THROMBOSIS
     Dosage: 0.2 ML, 1X/DAY
     Route: 058
     Dates: start: 20201023, end: 20201024
  2. DA LI XIN [CEFUROXIME SODIUM] [Suspect]
     Active Substance: CEFUROXIME SODIUM
     Indication: CAESAREAN SECTION
     Dosage: 1.5 G, 3X/DAY
     Route: 041
     Dates: start: 20201022, end: 20201024
  3. SODIUM CHLORIDE. [Concomitant]
     Active Substance: SODIUM CHLORIDE
     Indication: VEHICLE SOLUTION USE
     Dosage: 100 ML, 3X/DAY
     Route: 041
     Dates: start: 20201022, end: 20201024

REACTIONS (3)
  - Rash erythematous [Recovering/Resolving]
  - Rash [Recovering/Resolving]
  - Rash pruritic [Recovering/Resolving]

NARRATIVE: CASE EVENT DATE: 20201023
